FAERS Safety Report 5463852-2 (Version None)
Quarter: 2007Q3

REPORT INFORMATION
  Report Type: 
  Country: None (occurrence: None)
  Receive Date: 20070921
  Receipt Date: 20070911
  Transmission Date: 20080115
  Serious: Yes (Hospitalization)
  Sender: FDA-Public Use
  Company Number: US-MERCK-0709USA01484

PATIENT
  Age: 80 Year
  Sex: Female

DRUGS (3)
  1. VYTORIN [Suspect]
     Indication: HYPERCHOLESTEROLAEMIA
     Route: 048
  2. ATENOLOL [Concomitant]
     Indication: HYPERCHOLESTEROLAEMIA
     Route: 065
  3. SYNTHROID [Concomitant]
     Route: 065

REACTIONS (8)
  - FRACTURE [None]
  - NAIL DISORDER [None]
  - PELVIC FRACTURE [None]
  - PROMOTION OF WOUND HEALING [None]
  - ROAD TRAFFIC ACCIDENT [None]
  - SKIN DISORDER [None]
  - THERAPEUTIC RESPONSE UNEXPECTED [None]
  - THROMBOSIS [None]
